FAERS Safety Report 25230560 (Version 1)
Quarter: 2025Q2

REPORT INFORMATION
  Report Type: Spontaneous
  Country: US (occurrence: US)
  Receive Date: 20250423
  Receipt Date: 20250423
  Transmission Date: 20250717
  Serious: No
  Sender: LGM PHARMA SOLUTIONS, LLC
  Company Number: US-LGM Pharma Solutions, LLC-2175426

PATIENT
  Age: 49 Year
  Sex: Female

DRUGS (1)
  1. CHENODAL [Suspect]
     Active Substance: CHENODIOL
     Indication: Lipid metabolism disorder

REACTIONS (1)
  - Dermatitis contact [Not Recovered/Not Resolved]

NARRATIVE: CASE EVENT DATE: 20250402
